FAERS Safety Report 4359664-3 (Version None)
Quarter: 2004Q2

REPORT INFORMATION
  Report Type: 
  Country: None (occurrence: None)
  Receive Date: 20040512
  Receipt Date: 20040428
  Transmission Date: 20050107
  Serious: Yes (Other)
  Sender: FDA-Public Use
  Company Number: 2004-DE-02359GD

PATIENT
  Sex: Male

DRUGS (2)
  1. PREDNISONE [Suspect]
     Indication: CEREBRAL SARCOIDOSIS
     Dosage: SEE TEXT
  2. CYCLOPHOSPHAMIDE [Suspect]
     Indication: CEREBRAL SARCOIDOSIS

REACTIONS (9)
  - BLINDNESS [None]
  - DIABETES MELLITUS INSULIN-DEPENDENT [None]
  - HYPERTENSION [None]
  - HYPOPITUITARISM [None]
  - NUCLEAR MAGNETIC RESONANCE IMAGING BRAIN ABNORMAL [None]
  - OBESITY [None]
  - SARCOIDOSIS [None]
  - VISUAL ACUITY REDUCED [None]
  - VISUAL FIELD DEFECT [None]
